FAERS Safety Report 16814879 (Version 1)
Quarter: 2019Q3

REPORT INFORMATION
  Report Type: Spontaneous
  Country: US (occurrence: US)
  Receive Date: 20190917
  Receipt Date: 20190917
  Transmission Date: 20191005
  Serious: No
  Sender: FDA-Public Use
  Company Number: US-ALLERGAN-1854332US

PATIENT
  Age: 80 Year
  Sex: Female
  Weight: 58.96 kg

DRUGS (2)
  1. LINZESS [Suspect]
     Active Substance: LINACLOTIDE
     Indication: CONSTIPATION
     Dosage: UNK, QD (1-3 CAPSULE DAILY)
     Route: 048
     Dates: start: 201810, end: 201811
  2. UNSPECIFIED MEDICATION [Concomitant]
     Active Substance: UNSPECIFIED INGREDIENT
     Dosage: UNK

REACTIONS (3)
  - Incorrect dose administered [Unknown]
  - Drug ineffective [Unknown]
  - Diarrhoea [Not Recovered/Not Resolved]

NARRATIVE: CASE EVENT DATE: 201810
